FAERS Safety Report 17724825 (Version 1)
Quarter: 2020Q2

REPORT INFORMATION
  Report Type: Spontaneous
  Country: DK (occurrence: DK)
  Receive Date: 20200429
  Receipt Date: 20200429
  Transmission Date: 20200714
  Serious: Yes (Other)
  Sender: FDA-Public Use
  Company Number: NVSC2020DK114306

PATIENT
  Age: 64 Year
  Sex: Male

DRUGS (5)
  1. PREDNISOLONE. [Suspect]
     Active Substance: PREDNISOLONE
     Dosage: UNK (STYRKE: UKENDT. DOSIS: STARTDOSIS 80 MG DG. I 4 UGER)
     Route: 048
     Dates: start: 20141201, end: 20151109
  2. PREDNISOLONE. [Suspect]
     Active Substance: PREDNISOLONE
     Dosage: UNK (STYRKE: UKENDT. DOSIS: 15 MG DAGLIGT, NEDTRAPPET EFTERFOLGENDE)
     Route: 048
     Dates: start: 20161209, end: 201707
  3. PREDNISOLONE. [Suspect]
     Active Substance: PREDNISOLONE
     Indication: NEPHROTIC SYNDROME
     Dosage: UNK (STYRKE: UKENDT. DOSIS: STARTDOSIS 80 MG, NEDTRAPPET LANGSOMT)
     Route: 048
     Dates: start: 201207, end: 201311
  4. MYFENAX [Concomitant]
     Active Substance: MYCOPHENOLATE MOFETIL
     Indication: IMMUNOSUPPRESSANT DRUG THERAPY
     Dosage: STYRKE: UKENDT.DOSIS: UKENDT.
     Route: 048
     Dates: start: 201504, end: 2016
  5. CIQORIN [Concomitant]
     Active Substance: CYCLOSPORINE
     Indication: IMMUNOSUPPRESSANT DRUG THERAPY
     Dosage: STYRKE: UKENDT.DOSIS: STARTDATO P? 300 MG DAGLIGT. NEDTRAPPET L?BENDE
     Route: 048
     Dates: start: 201612, end: 2018

REACTIONS (4)
  - Insulin-requiring type 2 diabetes mellitus [Not Recovered/Not Resolved]
  - Sexual dysfunction [Not Recovered/Not Resolved]
  - Skin atrophy [Not Recovered/Not Resolved]
  - Ecchymosis [Unknown]

NARRATIVE: CASE EVENT DATE: 2012
